FAERS Safety Report 16013083 (Version 2)
Quarter: 2019Q1

REPORT INFORMATION
  Report Type: Spontaneous
  Country: US (occurrence: US)
  Receive Date: 20190227
  Receipt Date: 20190315
  Transmission Date: 20190418
  Serious: No
  Sender: FDA-Public Use
  Company Number: US-VERTEX PHARMACEUTICALS-2019-001707

PATIENT
  Age: 4 Year
  Sex: Male

DRUGS (5)
  1. ADEK [Concomitant]
     Dosage: 1 DOSAGE FORM, QD
     Route: 048
  2. ALBUTEROL                          /00139501/ [Concomitant]
     Active Substance: ALBUTEROL
     Dosage: 2-4 PUFFS EVERY 4 HOURS
     Route: 055
  3. DEXAMETHASONE. [Concomitant]
     Active Substance: DEXAMETHASONE
  4. KALYDECO [Suspect]
     Active Substance: IVACAFTOR
     Indication: CYSTIC FIBROSIS
     Dosage: 75 MG, BID
     Route: 048
     Dates: start: 20160802
  5. PANCREAZE                          /00150201/ [Concomitant]
     Dosage: 5 CAPSULES PER MEAL AND 4 CAPSULES WITH SNACKS

REACTIONS (1)
  - Decreased appetite [Not Recovered/Not Resolved]

NARRATIVE: CASE EVENT DATE: 201902
